FAERS Safety Report 25251762 (Version 3)
Quarter: 2025Q4

REPORT INFORMATION
  Report Type: Spontaneous
  Country: JP (occurrence: JP)
  Receive Date: 20250429
  Receipt Date: 20251024
  Transmission Date: 20260118
  Serious: Yes (Other)
  Sender: MERCK SHARP & DOHME LLC
  Company Number: JP-009507513-2280413

PATIENT
  Sex: Female

DRUGS (4)
  1. KEYTRUDA [Suspect]
     Active Substance: PEMBROLIZUMAB
     Route: 041
  2. PACLITAXEL [Concomitant]
     Active Substance: PACLITAXEL
  3. CISPLATIN [Concomitant]
     Active Substance: CISPLATIN
  4. BEVACIZUMAB [Concomitant]
     Active Substance: BEVACIZUMAB

REACTIONS (4)
  - Thrombosis [Unknown]
  - Malignant neoplasm progression [Unknown]
  - Therapy partial responder [Unknown]
  - Renal disorder [Unknown]
